FAERS Safety Report 25983337 (Version 3)
Quarter: 2025Q4

REPORT INFORMATION
  Report Type: Spontaneous
  Country: RU (occurrence: RU)
  Receive Date: 20251031
  Receipt Date: 20251117
  Transmission Date: 20260117
  Serious: Yes (Other)
  Sender: INCYTE
  Company Number: RU-002147023-NVSC2025RU151222

PATIENT
  Age: 70 Year

DRUGS (2)
  1. RUXOLITINIB [Suspect]
     Active Substance: RUXOLITINIB
     Indication: Myelofibrosis
     Dosage: 15 MG (PACKAGE OF 56 TABLETS)
     Route: 065
  2. RUXOLITINIB [Suspect]
     Active Substance: RUXOLITINIB
     Dosage: 30 MG, QD (30 MG PER DAY)
     Route: 065

REACTIONS (6)
  - Drug ineffective [Recovering/Resolving]
  - Asthenia [Recovered/Resolved]
  - Night sweats [Recovering/Resolving]
  - Splenomegaly [Recovering/Resolving]
  - Pyrexia [Recovered/Resolved]
  - Suspected counterfeit product [Unknown]
